FAERS Safety Report 18468360 (Version 2)
Quarter: 2020Q4

REPORT INFORMATION
  Report Type: Report from Study
  Country: AU (occurrence: AU)
  Receive Date: 20201105
  Receipt Date: 20201109
  Transmission Date: 20210114
  Serious: Yes (Hospitalization)
  Sender: FDA-Public Use
  Company Number: NVSC2020AU290693

PATIENT
  Age: 81 Year
  Sex: Male
  Weight: 52.5 kg

DRUGS (8)
  1. CETIRIZINE [Concomitant]
     Active Substance: CETIRIZINE HYDROCHLORIDE
     Indication: SEASONAL ALLERGY
     Dosage: UNK
     Route: 065
     Dates: start: 20150101
  2. ATORVASTATIN [Concomitant]
     Active Substance: ATORVASTATIN
     Indication: HYPERCHOLESTEROLAEMIA
     Dosage: 40 MG, QD
     Route: 048
     Dates: start: 20150101
  3. METOPROLOL. [Concomitant]
     Active Substance: METOPROLOL
     Dosage: 50 UNK
     Route: 048
     Dates: start: 20201001, end: 20201002
  4. RIBOCICLIB. [Suspect]
     Active Substance: RIBOCICLIB
     Indication: NEOPLASM
     Dosage: 150 MG, QD
     Route: 048
     Dates: start: 20200916
  5. TNO155 [Suspect]
     Active Substance: TNO-155 MONOSUCCINATE HEMIHYDRATE
     Indication: NEOPLASM
     Dosage: 20 MG, BID
     Route: 048
     Dates: start: 20200916
  6. ASPIRIN. [Concomitant]
     Active Substance: ASPIRIN
     Indication: TROPONIN INCREASED
     Dosage: 100 MG, QD
     Route: 048
     Dates: start: 20200930, end: 20201002
  7. IVABRADINE [Concomitant]
     Active Substance: IVABRADINE
     Indication: TROPONIN INCREASED
     Dosage: 05 MG, BID
     Route: 048
     Dates: start: 20201001, end: 20201002
  8. METOPROLOL. [Concomitant]
     Active Substance: METOPROLOL
     Indication: TROPONIN INCREASED
     Dosage: 25 MG, BID
     Route: 048
     Dates: start: 20201001, end: 20201001

REACTIONS (1)
  - Acute kidney injury [Not Recovered/Not Resolved]

NARRATIVE: CASE EVENT DATE: 20201027
